FAERS Safety Report 8013917-6 (Version None)
Quarter: 2011Q4

REPORT INFORMATION
  Report Type: 
  Country: None (occurrence: None)
  Receive Date: 20111229
  Receipt Date: 20111223
  Transmission Date: 20120403
  Serious: Yes (Hospitalization, Other)
  Sender: FDA-Public Use
  Company Number: PHHY2011FR103304

PATIENT
  Sex: Female

DRUGS (24)
  1. VALSARTAN [Suspect]
     Dosage: 1 DF, QD (40 MG)
     Route: 048
  2. STABLON [Suspect]
     Dosage: 2 DF, TID
     Route: 048
     Dates: start: 20110801
  3. MOTILIUM [Suspect]
     Dosage: 3 DF, QD
  4. ACETAMINOPHEN [Suspect]
     Dosage: 3 DF, QD
     Route: 048
     Dates: start: 20110903
  5. ZOLEDRONOC ACID [Suspect]
     Dosage: UNK UKN, UNK
     Route: 042
     Dates: start: 20090901
  6. PREDNISOLONE [Suspect]
     Dosage: 7 MG/DAY
  7. ASPIRIN [Suspect]
     Dosage: 1 DF, DAILY
     Route: 048
  8. PLAVIX [Concomitant]
     Dosage: 1 DF, DAILY
  9. PROPRANOLOL [Concomitant]
     Dosage: 1 DF, DAILY
  10. LEVOTHYROXINE SODIUM [Suspect]
     Dosage: 100 L, DAILY
  11. DILTIAZEM HCL [Suspect]
     Dosage: 60 MG, (ONE TABLET IN THE MORNING, ONE TABLET IN THE EVENING),
     Route: 048
     Dates: start: 20110830
  12. GAVISCON [Suspect]
     Dosage: UNK UKN, UNK
     Route: 048
     Dates: start: 20110903
  13. LANSOPRAZOLE [Concomitant]
     Dosage: 1 DF, IN THE MORNING
  14. PREDNISONE TAB [Suspect]
     Dosage: 0.5 DF, QD
     Dates: start: 20110903
  15. PREDNISOLONE [Suspect]
     Dosage: 15 MG, DAILY
  16. IMOVANE [Suspect]
     Dosage: 1 DF, QD
  17. CALCIUM CARBONATE [Suspect]
     Dosage: 1 DF, QD (100 MG/880 IU)
     Route: 048
  18. TRANSIPEG [Suspect]
     Dosage: 2 DF, IN MORNING
     Route: 048
     Dates: start: 20110903
  19. DOMPERIDONE [Concomitant]
     Dosage: 10 MG, TID, THRICE ADAY
  20. PREDNISOLONE [Suspect]
     Dosage: 10 MG/DAY
  21. PREDNISOLONE [Suspect]
     Dosage: 9 MG/DAY
  22. PROZAC [Suspect]
     Indication: DEPRESSION
     Dosage: 0.5 DF, QD
     Dates: start: 20110903
  23. SPASFON [Suspect]
     Dosage: UNK UKN, UNK
     Route: 048
     Dates: start: 20110903
  24. LAMALINE [Concomitant]
     Dosage: UNK UKN, PRN

REACTIONS (10)
  - C-REACTIVE PROTEIN INCREASED [None]
  - HAEMATOMA [None]
  - ABDOMINAL DISCOMFORT [None]
  - BACK PAIN [None]
  - BLOOD CHLORIDE DECREASED [None]
  - DEHYDRATION [None]
  - ABDOMINAL PAIN [None]
  - HYPONATRAEMIA [None]
  - CONSTIPATION [None]
  - GASTROINTESTINAL SOUNDS ABNORMAL [None]
